FAERS Safety Report 7883658-4 (Version None)
Quarter: 2011Q4

REPORT INFORMATION
  Report Type: 
  Country: None (occurrence: None)
  Receive Date: 20111102
  Receipt Date: 20111027
  Transmission Date: 20120403
  Serious: Yes (Hospitalization)
  Sender: FDA-Public Use
  Company Number: BR-PFIZER INC-2011263554

PATIENT
  Age: 84 Year
  Sex: Female

DRUGS (1)
  1. ALDACTONE [Suspect]
     Dosage: 25 MG, UNK
     Route: 048

REACTIONS (1)
  - URINARY TRACT INFECTION [None]
